FAERS Safety Report 7808827-0 (Version None)
Quarter: 2011Q4

REPORT INFORMATION
  Report Type: 
  Country: None (occurrence: None)
  Receive Date: 20111012
  Receipt Date: 20111004
  Transmission Date: 20120403
  Serious: Yes (Other)
  Sender: FDA-Public Use
  Company Number: PHHY2011IT82991

PATIENT
  Sex: Female

DRUGS (4)
  1. TENORMIN [Concomitant]
     Dosage: 150 MG, UNK
     Route: 048
  2. CARDURA [Concomitant]
     Dosage: 2 MG, UNK
     Route: 048
  3. LERCADIP [Concomitant]
     Dosage: 20 MG, DAILY
     Route: 048
  4. RASILEZ [Suspect]
     Indication: HYPERTENSION
     Dosage: 150 MG, UNK
     Route: 048
     Dates: start: 20110801, end: 20110831

REACTIONS (2)
  - DERMATITIS BULLOUS [None]
  - URTICARIA [None]
